FAERS Safety Report 7897499-5 (Version None)
Quarter: 2011Q4

REPORT INFORMATION
  Report Type: 
  Country: None (occurrence: None)
  Receive Date: 20111107
  Receipt Date: 20111103
  Transmission Date: 20120403
  Serious: Yes (Death, Hospitalization)
  Sender: FDA-Public Use
  Company Number: IT-MPIJNJ-2011-05306

PATIENT

DRUGS (3)
  1. PREDNISONE [Concomitant]
     Dosage: 50 MG, UNK
  2. VELCADE [Suspect]
     Indication: MANTLE CELL LYMPHOMA
     Dosage: 1 MG, 1/WEEK
     Route: 042
     Dates: start: 20110521, end: 20110610
  3. MABTHERA [Concomitant]
     Dosage: 375 MG, UNK
     Route: 042

REACTIONS (5)
  - ASTHENIA [None]
  - MYELOPATHY [None]
  - GAIT DISTURBANCE [None]
  - OFF LABEL USE [None]
  - POLYNEUROPATHY [None]
